FAERS Safety Report 14490122 (Version 5)
Quarter: 2019Q1

REPORT INFORMATION
  Report Type: Spontaneous
  Country: US (occurrence: US)
  Receive Date: 20180206
  Receipt Date: 20190121
  Transmission Date: 20190417
  Serious: Yes (Other)
  Sender: FDA-Public Use
  Company Number: US-BRISTOL-MYERS SQUIBB COMPANY-BMS-2018-009784

PATIENT
  Sex: Female
  Weight: 88.44 kg

DRUGS (2)
  1. ORENCIA [Suspect]
     Active Substance: ABATACEPT
     Indication: RHEUMATOID ARTHRITIS
     Dosage: 125 MG, QWK
     Route: 058
     Dates: start: 201708
  2. METHOTREXATE. [Suspect]
     Active Substance: METHOTREXATE
     Indication: PRODUCT USED FOR UNKNOWN INDICATION
     Route: 065

REACTIONS (8)
  - Urinary tract infection [Unknown]
  - Pharyngitis streptococcal [Unknown]
  - Drug ineffective [Unknown]
  - Kidney infection [Unknown]
  - Sinusitis [Unknown]
  - Ill-defined disorder [Unknown]
  - Ear infection [Recovered/Resolved]
  - Nephrolithiasis [Unknown]
